FAERS Safety Report 9111390 (Version 1)
Quarter: 2013Q1

REPORT INFORMATION
  Report Type: Spontaneous
  Country: US (occurrence: US)
  Receive Date: 20130219
  Receipt Date: 20130219
  Transmission Date: 20140127
  Serious: No
  Sender: FDA-Public Use
  Company Number: US-BRISTOL-MYERS SQUIBB COMPANY-16567521

PATIENT
  Age: 69 Year
  Sex: Female
  Weight: 47.62 kg

DRUGS (1)
  1. ORENCIA [Suspect]
     Indication: RHEUMATOID ARTHRITIS
     Dosage: STARTED ABOUT A MONTH AND A HALF AGO?NO OF INF:3 INF AT TWO WEEK INTERVALS?LAST INF:16APR2012
     Route: 042
     Dates: start: 2012

REACTIONS (4)
  - Influenza like illness [Recovered/Resolved]
  - Dizziness [Recovered/Resolved]
  - Nausea [Recovered/Resolved]
  - Fatigue [Unknown]
